FAERS Safety Report 21297102 (Version 4)
Quarter: 2022Q4

REPORT INFORMATION
  Report Type: Spontaneous
  Country: DE (occurrence: DE)
  Receive Date: 20220906
  Receipt Date: 20221018
  Transmission Date: 20230113
  Serious: Yes (Life-Threatening, Hospitalization)
  Sender: FDA-Public Use
  Company Number: DE-NOVARTISPH-NVSC2022DE200313

PATIENT
  Age: 66 Year
  Sex: Female
  Weight: 96 kg

DRUGS (7)
  1. PACLITAXEL [Suspect]
     Active Substance: PACLITAXEL
     Indication: Breast cancer female
     Dosage: 80 MG/M2, QW (80MG/M2) (STOP DATE: 22 AUG 2022)
     Route: 042
     Dates: start: 20220812, end: 20220822
  2. CARBOPLATIN [Suspect]
     Active Substance: CARBOPLATIN
     Indication: Breast cancer female
     Dosage: UNK , Q3W (5 AUC) (STOP DATE: 22 AUG 2022)
     Route: 042
     Dates: start: 20220812, end: 20220822
  3. PERTUZUMAB [Suspect]
     Active Substance: PERTUZUMAB
     Indication: Breast cancer
     Dosage: 420 MG, Q3W (MAINTENANCE DOSE, STOP DATE 22-AUG-2022)
     Route: 042
     Dates: start: 20220812, end: 20220822
  4. PERTUZUMAB [Suspect]
     Active Substance: PERTUZUMAB
     Dosage: 840 MG  (LOADING DOSE)
     Route: 042
  5. EUTHYROX [Concomitant]
     Active Substance: LEVOTHYROXINE SODIUM
     Indication: Hypothyroidism
     Dosage: 75 UG, QD
     Route: 048
  6. TAZOBACTAM [Concomitant]
     Active Substance: TAZOBACTAM
     Indication: Antibiotic prophylaxis
     Dosage: 0.5 MG, QD
     Route: 042
     Dates: start: 20220824, end: 20220907
  7. PIPERACILLIN [Concomitant]
     Active Substance: PIPERACILLIN
     Indication: Antibiotic prophylaxis
     Dosage: 4 MG, QD
     Route: 042
     Dates: start: 20220824, end: 20220907

REACTIONS (1)
  - Ileus [Recovered/Resolved with Sequelae]

NARRATIVE: CASE EVENT DATE: 20220822
